FAERS Safety Report 19973532 (Version 1)
Quarter: 2021Q4

REPORT INFORMATION
  Report Type: Spontaneous
  Country: US (occurrence: US)
  Receive Date: 20211019
  Receipt Date: 20211019
  Transmission Date: 20220303
  Serious: Yes (Hospitalization)
  Sender: FDA-Public Use
  Company Number: None

PATIENT
  Age: 70 Year
  Sex: Male

DRUGS (1)
  1. DOXAZOSIN MESYLATE [Suspect]
     Active Substance: DOXAZOSIN MESYLATE
     Indication: Benign prostatic hyperplasia
     Dates: start: 20200808, end: 20210930

REACTIONS (4)
  - Hypotension [None]
  - Syncope [None]
  - Orthostatic hypotension [None]
  - Arrhythmia [None]

NARRATIVE: CASE EVENT DATE: 20210928
